FAERS Safety Report 6342408-3 (Version None)
Quarter: 2009Q3

REPORT INFORMATION
  Report Type: 
  Country: None (occurrence: None)
  Receive Date: 20090908
  Receipt Date: 20090826
  Transmission Date: 20100115
  Serious: Yes (Other)
  Sender: FDA-Public Use
  Company Number: BR-ELI_LILLY_AND_COMPANY-BR200908005897

PATIENT
  Age: 53 Year
  Sex: Female
  Weight: 55 kg

DRUGS (3)
  1. HUMALOG [Suspect]
     Indication: TYPE 1 DIABETES MELLITUS
     Dosage: 6 IU, EACH MORNING
     Route: 065
     Dates: start: 20070707, end: 20090701
  2. HUMALOG [Suspect]
     Dosage: 6 IU, EACH EVENING
     Route: 065
     Dates: start: 20070707, end: 20090701
  3. LANTUS [Concomitant]
     Indication: DIABETES MELLITUS
     Dosage: UNK, UNKNOWN
     Route: 065

REACTIONS (5)
  - DRUG HYPERSENSITIVITY [None]
  - FEELING ABNORMAL [None]
  - HYPOGLYCAEMIA [None]
  - ISCHAEMIA [None]
  - WEIGHT INCREASED [None]
